FAERS Safety Report 5612290-8 (Version None)
Quarter: 2008Q1

REPORT INFORMATION
  Report Type: 
  Country: None (occurrence: None)
  Receive Date: 20080201
  Receipt Date: 20080201
  Transmission Date: 20080703
  Serious: Yes (Hospitalization)
  Sender: FDA-Public Use
  Company Number: None

PATIENT
  Sex: Male
  Weight: 71 kg

DRUGS (3)
  1. FLUOROURACIL [Suspect]
     Dosage: 5400 MG    SEE IMAGE
  2. CISPLATIN [Suspect]
     Dosage: 108 MG GIVEN ON DAY 1 ONLY OF CYCLE 3 BY IV OVER 1 HOUR
     Route: 042
  3. ELLENCE [Suspect]
     Dosage: 90 MG GIVEN ON DAY 1 ONLY OF CYCLE 3 BY IV PUSH OVER 10 MINUTES
     Route: 042

REACTIONS (2)
  - NEUTROPENIA [None]
  - PALMAR-PLANTAR ERYTHRODYSAESTHESIA SYNDROME [None]
